FAERS Safety Report 5301518-X (Version None)
Quarter: 2007Q2

REPORT INFORMATION
  Report Type: 
  Country: None (occurrence: None)
  Receive Date: 20070412
  Receipt Date: 20070402
  Transmission Date: 20071010
  Serious: Yes (Other)
  Sender: FDA-Public Use
  Company Number: GXKR2007GB03097

PATIENT
  Age: 51 Year
  Sex: Female
  Weight: 57.2 kg

DRUGS (12)
  1. TRAMADOL HCL [Suspect]
     Indication: BACK PAIN
     Dosage: 50 MG, ORAL
     Route: 048
     Dates: start: 20070314, end: 20070316
  2. ACCOLATE [Concomitant]
  3. CEPHALEXIN [Concomitant]
  4. CETIRIZINE HCL [Concomitant]
  5. CODEINE PHOSPHATE (CODEINE PHOSPHATE) [Concomitant]
  6. DIAZEPAM [Concomitant]
  7. ELLESTE-DUET (ESTRADIOL, NORETHISTERONE ACETATE) [Concomitant]
  8. NYSTATIN [Concomitant]
  9. PREDNISOLONE [Concomitant]
  10. SALBUTAMOL (SALBUTAMOL) [Concomitant]
  11. FLUTICASONE PROPIONATE W/SALMETEROL XINAFOATE (FLUTICASONE PROPIONATE, [Concomitant]
  12. ZAPAIN (CODEINE PHOSPHATE, PARACETAMOL) [Concomitant]

REACTIONS (1)
  - ASTHMA [None]
